FAERS Safety Report 9587548 (Version 1)
Quarter: 2013Q4

REPORT INFORMATION
  Report Type: Spontaneous
  Country: US (occurrence: US)
  Receive Date: 20131003
  Receipt Date: 20131003
  Transmission Date: 20140711
  Serious: No
  Sender: FDA-Public Use
  Company Number: US-BAYER-2013-119742

PATIENT
  Age: 56 Year
  Sex: Female

DRUGS (1)
  1. BETASERON [Suspect]
     Indication: MULTIPLE SCLEROSIS
     Dosage: 0.25MG
     Route: 058
     Dates: start: 20121116

REACTIONS (3)
  - Muscle spasms [None]
  - Pain in extremity [None]
  - Drug dose omission [None]
